FAERS Safety Report 10332232 (Version 1)
Quarter: 2014Q3

REPORT INFORMATION
  Report Type: Report from Study
  Country: CA (occurrence: CA)
  Receive Date: 20140722
  Receipt Date: 20140722
  Transmission Date: 20150326
  Serious: Yes (Other)
  Sender: FDA-Public Use
  Company Number: CA-BRISTOL-MYERS SQUIBB COMPANY-21214028

PATIENT
  Age: 51 Year
  Sex: Male

DRUGS (18)
  1. FOLIC ACID. [Concomitant]
     Active Substance: FOLIC ACID
  2. PLAQUENIL [Concomitant]
     Active Substance: HYDROXYCHLOROQUINE SULFATE
  3. ROSUVASTATIN [Concomitant]
     Active Substance: ROSUVASTATIN
  4. NOVOLIN [Concomitant]
     Active Substance: INSULIN HUMAN
  5. VITAMIN D [Concomitant]
     Active Substance: CHOLECALCIFEROL
  6. NEXIUM [Concomitant]
     Active Substance: ESOMEPRAZOLE MAGNESIUM
  7. VALSARTAN. [Concomitant]
     Active Substance: VALSARTAN
  8. PREDNISONE. [Concomitant]
     Active Substance: PREDNISONE
  9. INSULIN-TORONTO [Concomitant]
  10. HYDROMORPH [Concomitant]
     Active Substance: HYDROMORPHONE
  11. ASAPHEN [Concomitant]
     Active Substance: ASPIRIN
  12. GLYBURIDE. [Concomitant]
     Active Substance: GLYBURIDE
  13. METHOTREXATE [Concomitant]
     Active Substance: METHOTREXATE
  14. VENLAFAXINE HCL [Concomitant]
     Active Substance: VENLAFAXINE HYDROCHLORIDE
  15. BISOPROLOL [Concomitant]
     Active Substance: BISOPROLOL
  16. ORENCIA [Suspect]
     Active Substance: ABATACEPT
     Indication: RHEUMATOID ARTHRITIS
     Dosage: LAST INFUSION WAS CANCELLED ON 14JUL14
     Route: 042
     Dates: start: 20130308
  17. METFORMIN [Concomitant]
     Active Substance: METFORMIN HYDROCHLORIDE
  18. NITROGLYCERIN. [Concomitant]
     Active Substance: NITROGLYCERIN

REACTIONS (1)
  - Testicular cyst [Unknown]
